FAERS Safety Report 16183192 (Version 1)
Quarter: 2019Q2

REPORT INFORMATION
  Report Type: Spontaneous
  Country: DE (occurrence: DE)
  Receive Date: 20190411
  Receipt Date: 20190411
  Transmission Date: 20190711
  Serious: Yes (Other)
  Sender: FDA-Public Use
  Company Number: DE-EMD SERONO-9035659

PATIENT
  Age: 25 Year
  Sex: Female
  Weight: 73 kg

DRUGS (3)
  1. MAVENCLAD [Suspect]
     Active Substance: CLADRIBINE
     Indication: RELAPSING-REMITTING MULTIPLE SCLEROSIS
     Dosage: FIRST WEEK THERAPY: TWO TABLETS ON DAYS 1 TO 2 AND 1 TABLET ON DAYS 3 TO 5 (EACH TABLET 10 MG).
     Dates: start: 20180508, end: 20180512
  2. MAVENCLAD [Suspect]
     Active Substance: CLADRIBINE
     Dosage: SECOND WEEK THERAPY: TWO TABLETS ON DAYS 1 TO 2 AND 1 TABLET ON DAYS 3 TO 5 (EACH TABLET 10 MG).
     Dates: start: 20180608, end: 20180612
  3. DEKRISTOL [Concomitant]
     Active Substance: CHOLECALCIFEROL
     Indication: PRODUCT USED FOR UNKNOWN INDICATION

REACTIONS (17)
  - Red blood cells urine positive [Unknown]
  - Lymphocyte count decreased [Unknown]
  - Bacterial test positive [Unknown]
  - Arthritis [Recovered/Resolved with Sequelae]
  - Uhthoff^s phenomenon [Unknown]
  - Urinary sediment present [Unknown]
  - Arthralgia [Recovering/Resolving]
  - White blood cells urine positive [Unknown]
  - White blood cell count decreased [Unknown]
  - Multiple sclerosis relapse [Unknown]
  - Decreased vibratory sense [Unknown]
  - Paraesthesia [Unknown]
  - Joint swelling [Recovering/Resolving]
  - Hypoaesthesia [Unknown]
  - Dizziness [Unknown]
  - Sensory loss [Unknown]
  - Feeling of body temperature change [Unknown]
